FAERS Safety Report 23797169 (Version 1)
Quarter: 2024Q2

REPORT INFORMATION
  Report Type: Spontaneous
  Country: US (occurrence: US)
  Receive Date: 20240430
  Receipt Date: 20240430
  Transmission Date: 20240716
  Serious: No
  Sender: FDA-Public Use
  Company Number: US-JNJFOC-20240441781

PATIENT
  Age: 18 Month
  Sex: Male

DRUGS (1)
  1. MOTRIN INFANTS [Suspect]
     Active Substance: IBUPROFEN
     Indication: Product used for unknown indication
     Dosage: PATIENT RECEIVED AT 4:15 PM YESTERDAY. AND 6 HOURS AND A HALF LATER, I GAVE HIM ONE THEN I WOKE UP A
     Route: 065
     Dates: start: 20240409

REACTIONS (1)
  - Inappropriate schedule of product administration [Unknown]

NARRATIVE: CASE EVENT DATE: 20240409
